FAERS Safety Report 11155618 (Version 1)
Quarter: 2015Q2

REPORT INFORMATION
  Report Type: Spontaneous
  Country: US (occurrence: US)
  Receive Date: 20150602
  Receipt Date: 20150602
  Transmission Date: 20150821
  Serious: No
  Sender: FDA-Public Use
  Company Number: US-BANPHARM-20153743

PATIENT
  Age: 36 Year
  Sex: Female

DRUGS (1)
  1. PROGESTERONE CAPSULES 200 MG [Suspect]
     Active Substance: PROGESTERONE
     Dosage: ONCE,
     Route: 067
     Dates: start: 20150310, end: 20150310

REACTIONS (3)
  - Incorrect route of drug administration [Unknown]
  - Chromaturia [Unknown]
  - Off label use [Unknown]

NARRATIVE: CASE EVENT DATE: 20150310
